FAERS Safety Report 9124317 (Version 1)
Quarter: 2013Q1

REPORT INFORMATION
  Report Type: Spontaneous
  Country: US (occurrence: US)
  Receive Date: 20130227
  Receipt Date: 20130227
  Transmission Date: 20140127
  Serious: No
  Sender: FDA-Public Use
  Company Number: US-MYLANLABS-2012S1023530

PATIENT
  Age: 55 Year
  Sex: Male

DRUGS (3)
  1. MONTELUKAST SODIUM [Suspect]
     Indication: ALLERGY TO ANIMAL
     Route: 048
     Dates: start: 201209
  2. LORATADINE [Suspect]
     Indication: ALLERGY TO ANIMAL
     Route: 048
     Dates: start: 201210, end: 20121106
  3. CLARITIN [Suspect]
     Indication: ALLERGY TO ANIMAL
     Route: 048
     Dates: start: 20121107

REACTIONS (2)
  - Drug ineffective [Not Recovered/Not Resolved]
  - Allergic respiratory symptom [Not Recovered/Not Resolved]
